FAERS Safety Report 7866571-8 (Version None)
Quarter: 2011Q4

REPORT INFORMATION
  Report Type: 
  Country: None (occurrence: None)
  Receive Date: 20111028
  Receipt Date: 20110708
  Transmission Date: 20120403
  Serious: Yes (Other)
  Sender: FDA-Public Use
  Company Number: US-GLAXOSMITHKLINE-A0936051A

PATIENT
  Sex: Female

DRUGS (9)
  1. ADVAIR DISKUS 100/50 [Suspect]
     Indication: CHRONIC OBSTRUCTIVE PULMONARY DISEASE
     Dosage: 1PUFF TWICE PER DAY
     Route: 055
     Dates: start: 20010101
  2. OMEPRAZOLE [Concomitant]
  3. UNSPECIFIED MEDICATION [Concomitant]
  4. PREDNISONE [Concomitant]
  5. IPRATROPIUM BROMIDE [Concomitant]
  6. DILTIAZEM HCL [Concomitant]
  7. ZYRTEC [Concomitant]
  8. ASPIRIN [Concomitant]
  9. CLOTRIMAZOLE [Concomitant]

REACTIONS (2)
  - CANDIDIASIS [None]
  - PNEUMONIA [None]
